FAERS Safety Report 14119957 (Version 1)
Quarter: 2017Q4

REPORT INFORMATION
  Report Type: Not Available
  Country: US (occurrence: US)
  Receive Date: 20171024
  Receipt Date: 20171024
  Transmission Date: 20180321
  Serious: No
  Sender: FDA-Public Use
  Company Number: US-NEUROCRINE BIOSCIENCES INC.-2017NBI00971

PATIENT
  Age: 52 Year
  Sex: Female

DRUGS (7)
  1. CYMBALTA [Concomitant]
     Active Substance: DULOXETINE HYDROCHLORIDE
  2. BUPROPION. [Concomitant]
     Active Substance: BUPROPION
  3. PRAZOSIN. [Concomitant]
     Active Substance: PRAZOSIN
     Dosage: AT BEDTIME
  4. SEROQUEL [Concomitant]
     Active Substance: QUETIAPINE FUMARATE
  5. INGREZZA [Suspect]
     Active Substance: VALBENAZINE
     Indication: TARDIVE DYSKINESIA
     Route: 048
     Dates: start: 20170720, end: 20170726
  6. INGREZZA [Suspect]
     Active Substance: VALBENAZINE
     Route: 048
     Dates: start: 20170727, end: 20170911
  7. TRAZODONE [Concomitant]
     Active Substance: TRAZODONE HYDROCHLORIDE
     Dosage: AT BEDTIME

REACTIONS (2)
  - Fatigue [Recovering/Resolving]
  - Anxiety [Recovering/Resolving]

NARRATIVE: CASE EVENT DATE: 20171004
